FAERS Safety Report 9039335 (Version 1)
Quarter: 2013Q1

REPORT INFORMATION
  Report Type: Spontaneous
  Country: US (occurrence: None)
  Receive Date: 20130123
  Receipt Date: 20130123
  Transmission Date: 20140127
  Serious: Yes (Hospitalization, Other)
  Sender: FDA-Public Use
  Company Number: None

PATIENT
  Age: 28 Year
  Sex: Female
  Weight: 88.91 kg

DRUGS (2)
  1. MIRENA [Suspect]
     Indication: CONTRACEPTION
     Dates: start: 20100630, end: 20111020
  2. MIRENA [Concomitant]

REACTIONS (3)
  - Appendix disorder [None]
  - Ovarian cyst ruptured [None]
  - Intra-abdominal haemorrhage [None]
